FAERS Safety Report 22197110 (Version 1)
Quarter: 2023Q2

REPORT INFORMATION
  Report Type: Spontaneous
  Country: NL (occurrence: NL)
  Receive Date: 20230411
  Receipt Date: 20230411
  Transmission Date: 20230721
  Serious: Yes (Other)
  Sender: FDA-Public Use
  Company Number: NL-SUN PHARMACEUTICAL INDUSTRIES LTD-2023RR-383965

PATIENT
  Age: 55 Year
  Sex: Male

DRUGS (6)
  1. VENLAFAXINE [Suspect]
     Active Substance: VENLAFAXINE HYDROCHLORIDE
     Indication: Depression
     Dosage: 75 MILLIGRAM, UNK
     Route: 065
     Dates: start: 2002, end: 2008
  2. VENLAFAXINE [Suspect]
     Active Substance: VENLAFAXINE HYDROCHLORIDE
     Dosage: 37.5 MILLIGRAM, UNK
     Route: 065
     Dates: start: 2022
  3. METOPROLOL [Suspect]
     Active Substance: METOPROLOL
     Indication: Angina pectoris
     Dosage: UNK
     Route: 065
  4. ASPIRIN [Concomitant]
     Active Substance: ASPIRIN
     Indication: Product used for unknown indication
     Dosage: UNK
     Route: 065
     Dates: start: 200904
  5. PLAVIX [Concomitant]
     Active Substance: CLOPIDOGREL BISULFATE
     Indication: Product used for unknown indication
     Dosage: UNK
     Route: 065
     Dates: start: 200904
  6. SIMVASTATIN [Concomitant]
     Active Substance: SIMVASTATIN
     Indication: Product used for unknown indication
     Dosage: UNK
     Route: 065
     Dates: start: 200904

REACTIONS (8)
  - Sexual dysfunction [Unknown]
  - Withdrawal syndrome [Unknown]
  - Libido decreased [Unknown]
  - Ejaculation delayed [Unknown]
  - Erectile dysfunction [Unknown]
  - Electric shock sensation [Unknown]
  - Hypertonic bladder [Unknown]
  - Urinary incontinence [Unknown]
